FAERS Safety Report 5170307-1 (Version None)
Quarter: 2006Q4

REPORT INFORMATION
  Report Type: 
  Country: None (occurrence: None)
  Receive Date: 20061204
  Receipt Date: 20061120
  Transmission Date: 20070319
  Serious: Yes (Hospitalization)
  Sender: FDA-Public Use
  Company Number: 2006JP004794

PATIENT
  Age: 64 Year
  Sex: Female

DRUGS (4)
  1. VESICARE [Suspect]
     Dosage: 5 MG, UID/QD, ORAL
     Route: 048
     Dates: start: 20061012, end: 20061031
  2. MICARDIS [Suspect]
     Dosage: 40 MG, UID/QD, ORAL
     Route: 048
     Dates: start: 20061012, end: 20061031
  3. DIAZEPAM [Suspect]
     Dosage: 4 MG, UNKNOWN/D, ORAL
     Route: 048
     Dates: start: 20061012, end: 20061031
  4. AJMALINE (AJMALINE) PER ORAL NOS [Suspect]
     Dosage: 150 MG, UNKNOWN/D, ORAL
     Route: 048
     Dates: start: 20061012, end: 20061031

REACTIONS (4)
  - ALANINE AMINOTRANSFERASE INCREASED [None]
  - ASPARTATE AMINOTRANSFERASE INCREASED [None]
  - GAMMA-GLUTAMYLTRANSFERASE INCREASED [None]
  - LIVER DISORDER [None]
